FAERS Safety Report 19657309 (Version 2)
Quarter: 2024Q3

REPORT INFORMATION
  Report Type: Report from Study
  Country: PH (occurrence: PH)
  Receive Date: 20210804
  Receipt Date: 20240730
  Transmission Date: 20241016
  Serious: Yes (Death)
  Sender: NOVARTIS
  Company Number: PH-NOVARTISPH-NVSC2021PH175471

PATIENT

DRUGS (1)
  1. ENTRESTO [Suspect]
     Active Substance: SACUBITRIL\VALSARTAN
     Indication: Product used for unknown indication
     Dosage: UNK
     Route: 065

REACTIONS (4)
  - Acute respiratory failure [Fatal]
  - Acute myocardial infarction [Fatal]
  - Atrioventricular block complete [Fatal]
  - Cardiac failure [Fatal]
